FAERS Safety Report 4557981-5 (Version None)
Quarter: 2005Q1

REPORT INFORMATION
  Report Type: 
  Country: None (occurrence: None)
  Receive Date: 20050121
  Receipt Date: 20040405
  Transmission Date: 20050727
  Serious: Yes (Other)
  Sender: FDA-Public Use
  Company Number: US-BRISTOL-MYERS SQUIBB COMPANY-12554242

PATIENT
  Age: 38 Year
  Sex: Male
  Weight: 123 kg

DRUGS (5)
  1. SERZONE [Suspect]
     Indication: ANXIETY
     Dosage: DOSE INCREASED TO 200 MG TWICE DAILY
     Route: 048
     Dates: start: 19990324, end: 20020201
  2. LORTAB [Concomitant]
  3. XANAX [Concomitant]
  4. ATIVAN [Concomitant]
  5. PROZAC [Concomitant]

REACTIONS (5)
  - ALANINE AMINOTRANSFERASE INCREASED [None]
  - ASPARTATE AMINOTRANSFERASE INCREASED [None]
  - HEPATIC STEATOSIS [None]
  - LIBIDO DECREASED [None]
  - RASH [None]
